FAERS Safety Report 12257247 (Version 2)
Quarter: 2016Q2

REPORT INFORMATION
  Report Type: Spontaneous
  Country: US (occurrence: US)
  Receive Date: 20160412
  Receipt Date: 20160615
  Transmission Date: 20160815
  Serious: No
  Sender: FDA-Public Use
  Company Number: US-ACTELION PHARMACEUTICALS US, INC.-A-US2016-134106

PATIENT
  Age: 78 Year
  Sex: Female

DRUGS (1)
  1. OPSUMIT [Suspect]
     Active Substance: MACITENTAN
     Indication: PULMONARY ARTERIAL HYPERTENSION
     Dosage: 10 MG, QD
     Route: 048
     Dates: start: 20160329

REACTIONS (8)
  - Cough [Unknown]
  - Chest discomfort [Unknown]
  - Flatulence [Unknown]
  - Influenza [Unknown]
  - Dyspnoea [Unknown]
  - Respiratory tract congestion [Unknown]
  - Gingival swelling [Unknown]
  - Gingival bleeding [Unknown]
